FAERS Safety Report 24816964 (Version 1)
Quarter: 2025Q1

REPORT INFORMATION
  Report Type: Report from Study
  Country: GB (occurrence: None)
  Receive Date: 20250108
  Receipt Date: 20250108
  Transmission Date: 20250408
  Serious: Yes (Hospitalization)
  Sender: Alvotech
  Company Number: GB-ALVOTECHPMS-2024-ALVOTECHPMS-002551

PATIENT
  Age: 66 Year
  Sex: Male

DRUGS (1)
  1. USTEKINUMAB [Suspect]
     Active Substance: USTEKINUMAB
     Indication: Psoriasis
     Dosage: 1 X 45 MG / 10 WEEK (S)?PRE-FILLED SYRINGE
     Route: 058

REACTIONS (3)
  - Off label use [Unknown]
  - Fall [Unknown]
  - Inappropriate schedule of product administration [Unknown]
